FAERS Safety Report 6906194-8 (Version None)
Quarter: 2010Q3

REPORT INFORMATION
  Report Type: 
  Country: None (occurrence: None)
  Receive Date: 20100804
  Receipt Date: 20100727
  Transmission Date: 20110219
  Serious: Yes (Hospitalization)
  Sender: FDA-Public Use
  Company Number: PHHO2010DE10296

PATIENT
  Sex: Male
  Weight: 54 kg

DRUGS (2)
  1. TACROLIMUS [Suspect]
     Indication: LIVER TRANSPLANT
     Dosage: 0.5 MG
     Route: 048
     Dates: start: 20091119, end: 20100420
  2. CERTICAN [Suspect]
     Indication: LIVER TRANSPLANT
     Dosage: UNK
     Route: 048
     Dates: start: 20091215, end: 20100420

REACTIONS (6)
  - BILIARY DRAINAGE [None]
  - BILIARY ISCHAEMIA [None]
  - ENDOSCOPIC RETROGRADE CHOLANGIOPANCREATOGRAPHY [None]
  - HEPATIC ARTERY STENOSIS [None]
  - LIVER ABSCESS [None]
  - STENT PLACEMENT [None]
